FAERS Safety Report 21765540 (Version 1)
Quarter: 2022Q4

REPORT INFORMATION
  Report Type: Spontaneous
  Country: PT (occurrence: PT)
  Receive Date: 20221222
  Receipt Date: 20221222
  Transmission Date: 20230112
  Serious: Yes (Other)
  Sender: FDA-Public Use
  Company Number: PT-Accord-292683

PATIENT
  Age: 50 Year
  Sex: Male

DRUGS (2)
  1. ETOPOSIDE [Suspect]
     Active Substance: ETOPOSIDE
     Indication: Transurethral bladder resection
  2. CISPLATIN [Suspect]
     Active Substance: CISPLATIN
     Indication: Transurethral bladder resection

REACTIONS (2)
  - Nephropathy toxic [Recovered/Resolved]
  - Neutropenia [Unknown]
